FAERS Safety Report 10791393 (Version 3)
Quarter: 2015Q3

REPORT INFORMATION
  Report Type: Spontaneous
  Country: BR (occurrence: BR)
  Receive Date: 20150213
  Receipt Date: 20150708
  Transmission Date: 20151125
  Serious: Yes (Death, Hospitalization, Other)
  Sender: FDA-Public Use
  Company Number: BR-PFIZER INC-2014269803

PATIENT
  Age: 69 Year
  Sex: Male
  Weight: 79.5 kg

DRUGS (2)
  1. SUTENT [Suspect]
     Active Substance: SUNITINIB MALATE
     Dosage: 50 MG, CYCLIC (CYCLE 4/2)
     Route: 048
     Dates: start: 201505, end: 201505
  2. SUTENT [Suspect]
     Active Substance: SUNITINIB MALATE
     Indication: METASTATIC RENAL CELL CARCINOMA
     Dosage: 50 MG, CYCLIC (CYCLE 4/2)
     Route: 048
     Dates: start: 20140815, end: 201501

REACTIONS (15)
  - Pneumonia [Unknown]
  - Metastatic renal cell carcinoma [Unknown]
  - Death [Fatal]
  - Platelet count decreased [Recovering/Resolving]
  - Anaemia [Unknown]
  - Blister [Unknown]
  - Disease progression [Unknown]
  - Catheter site infection [Unknown]
  - Hepatomegaly [Unknown]
  - Secretion discharge [Unknown]
  - Immune system disorder [Unknown]
  - Renal failure [Unknown]
  - Respiratory failure [Unknown]
  - Eating disorder [Not Recovered/Not Resolved]
  - Asthenia [Not Recovered/Not Resolved]

NARRATIVE: CASE EVENT DATE: 20150515
